FAERS Safety Report 17394594 (Version 1)
Quarter: 2020Q1

REPORT INFORMATION
  Report Type: Spontaneous
  Country: US (occurrence: US)
  Receive Date: 20200124
  Receipt Date: 20200124
  Transmission Date: 20200409
  Serious: No
  Sender: FDA-Public Use
  Company Number: None

PATIENT
  Age: 16 Year
  Sex: Female

DRUGS (1)
  1. METHOTREXATE MDV (2ML/VL) 25MG/ML NOVAPLUS/HOSPIRA [Suspect]
     Active Substance: METHOTREXATE
     Indication: PYREXIA
     Route: 058
     Dates: start: 20200117

REACTIONS (2)
  - Abdominal pain [None]
  - Diarrhoea [None]

NARRATIVE: CASE EVENT DATE: 20200123
